FAERS Safety Report 5521010-7 (Version None)
Quarter: 2007Q4

REPORT INFORMATION
  Report Type: 
  Country: None (occurrence: None)
  Receive Date: 20071119
  Receipt Date: 20060127
  Transmission Date: 20080405
  Serious: Yes (Death)
  Sender: FDA-Public Use
  Company Number: JP-ROCHE-429538

PATIENT
  Age: 38 Year
  Sex: Male
  Weight: 55 kg

DRUGS (4)
  1. TAMIFLU [Suspect]
     Route: 048
     Dates: start: 20050313, end: 20050313
  2. TAMIFLU [Suspect]
     Route: 048
     Dates: start: 20050314, end: 20050314
  3. HUMULIN 70/30 [Concomitant]
     Indication: DIABETES MELLITUS
     Route: 058
     Dates: start: 20050310, end: 20050314
  4. LOXONIN [Concomitant]
     Dosage: 14 MAR 2005 DOSE REDUCED TO 60 MG 1/1 DAY FOR ONE DAY ONLY
     Route: 048
     Dates: start: 20050313, end: 20050313

REACTIONS (2)
  - CARDIO-RESPIRATORY ARREST [None]
  - SUDDEN DEATH [None]
